FAERS Safety Report 5167370-0 (Version None)
Quarter: 2006Q4

REPORT INFORMATION
  Report Type: 
  Country: None (occurrence: None)
  Receive Date: 20061130
  Receipt Date: 20061005
  Transmission Date: 20070319
  Serious: No
  Sender: FDA-Public Use
  Company Number: US-GDP-0613692

PATIENT
  Age: 52 Year
  Sex: Male

DRUGS (2)
  1. CLOBETASOL PROPIONATE [Suspect]
     Indication: PSORIASIS
     Dosage: 1 APP Q2W TP
     Route: 064
     Dates: start: 20060310, end: 20060407
  2. DOVENOX [Concomitant]

REACTIONS (1)
  - ABSCESS [None]
